FAERS Safety Report 10509087 (Version 1)
Quarter: 2014Q3

REPORT INFORMATION
  Report Type: Spontaneous
  Country: US (occurrence: None)
  Receive Date: 20140915
  Receipt Date: 20140915
  Transmission Date: 20150326
  Serious: Yes (Other)
  Sender: FDA-Public Use
  Company Number: 2014-US-002390

PATIENT
  Age: 40 Year
  Sex: Female

DRUGS (1)
  1. XYREM [Suspect]
     Active Substance: SODIUM OXYBATE
     Indication: HYPERSOMNIA
     Route: 048
     Dates: start: 201310

REACTIONS (9)
  - Nausea [None]
  - Vomiting [None]
  - Weight decreased [None]
  - Chest pain [None]
  - Face injury [None]
  - Confusional state [None]
  - Dizziness [None]
  - Off label use [None]
  - Drug dose omission [None]

NARRATIVE: CASE EVENT DATE: 201402
